FAERS Safety Report 22651328 (Version 1)
Quarter: 2023Q2

REPORT INFORMATION
  Report Type: Report from Study
  Country: HU (occurrence: HU)
  Receive Date: 20230628
  Receipt Date: 20230628
  Transmission Date: 20230721
  Serious: Yes (Hospitalization, Other)
  Sender: FDA-Public Use
  Company Number: HU-PFIZER INC-PV202300079847

PATIENT
  Age: 73 Year
  Sex: Male
  Weight: 65 kg

DRUGS (3)
  1. ENCORAFENIB [Suspect]
     Active Substance: ENCORAFENIB
     Indication: Malignant melanoma
     Dosage: ENCORAFENIB;BINIMETINIB;PLACEBO, ONCE DAILY
     Route: 048
     Dates: start: 20220830
  2. BINIMETINIB [Suspect]
     Active Substance: BINIMETINIB
     Indication: Malignant melanoma
     Dosage: UNK, 2X/DAY
     Route: 048
     Dates: start: 20220830
  3. PEMBROLIZUMAB [Suspect]
     Active Substance: PEMBROLIZUMAB
     Indication: Malignant melanoma
     Dosage: 200 MG, DAY 1 EVERY 3 WEEKS (21 DAYS)
     Route: 042
     Dates: start: 20220830

REACTIONS (4)
  - Renal impairment [Recovered/Resolved]
  - Hyponatraemia [Recovered/Resolved]
  - Diarrhoea [Recovered/Resolved]
  - Anaemia [Recovered/Resolved]

NARRATIVE: CASE EVENT DATE: 20230428
